FAERS Safety Report 10178506 (Version 1)
Quarter: 2014Q2

REPORT INFORMATION
  Report Type: Spontaneous
  Country: US (occurrence: US)
  Receive Date: 20140519
  Receipt Date: 20140519
  Transmission Date: 20141212
  Serious: Yes (Hospitalization)
  Sender: FDA-Public Use
  Company Number: US-BAYER-2014-071971

PATIENT
  Age: 31 Year
  Sex: Female
  Weight: 70.75 kg

DRUGS (11)
  1. YAZ [Suspect]
     Dosage: UNK
     Dates: end: 200906
  2. MOTRIN [Concomitant]
  3. LAMICTAL [Concomitant]
     Indication: AFFECTIVE DISORDER
     Dosage: 100 MG, 1 TABLET DAILY
  4. MULTIVITAMIN [Concomitant]
  5. PAXIL [Concomitant]
     Dosage: 40 MG, DAILY
  6. ABILIFY [Concomitant]
  7. ALPRAZOLAM [Concomitant]
  8. ALBUTEROL [Concomitant]
  9. MS CONTIN [Concomitant]
  10. NORCO [Concomitant]
  11. MARIJUANA [Concomitant]

REACTIONS (2)
  - Pulmonary embolism [None]
  - Thrombophlebitis superficial [None]
